FAERS Safety Report 13857606 (Version 1)
Quarter: 2017Q3

REPORT INFORMATION
  Report Type: Spontaneous
  Country: US (occurrence: US)
  Receive Date: 20170811
  Receipt Date: 20170811
  Transmission Date: 20171127
  Serious: Yes (Other)
  Sender: FDA-Public Use
  Company Number: US-BAYER-2017-148854

PATIENT
  Age: 57 Year
  Sex: Male

DRUGS (1)
  1. BETASERON [Suspect]
     Active Substance: INTERFERON BETA-1B
     Indication: MULTIPLE SCLEROSIS
     Dosage: 0.25 MG, QOD
     Route: 058
     Dates: start: 20160201

REACTIONS (8)
  - Intervertebral disc protrusion [None]
  - Spinal column stenosis [None]
  - Nasopharyngitis [None]
  - Multiple sclerosis relapse [None]
  - Nerve compression [None]
  - Injection site reaction [None]
  - Injection site mass [None]
  - Wrong technique in product usage process [None]
